FAERS Safety Report 6838395-1 (Version None)
Quarter: 2010Q3

REPORT INFORMATION
  Report Type: 
  Country: None (occurrence: None)
  Receive Date: 20100713
  Receipt Date: 20070702
  Transmission Date: 20110219
  Serious: No
  Sender: FDA-Public Use
  Company Number: US-PFIZER INC-2007047458

PATIENT
  Sex: Female
  Weight: 81.6 kg

DRUGS (4)
  1. CHANTIX [Suspect]
     Indication: SMOKING CESSATION THERAPY
     Dates: start: 20060601, end: 20070101
  2. LEXAPRO [Concomitant]
  3. FEXOFENADINE [Concomitant]
  4. NEXIUM [Concomitant]

REACTIONS (1)
  - GINGIVITIS [None]
